FAERS Safety Report 6746587-5 (Version None)
Quarter: 2010Q2

REPORT INFORMATION
  Report Type: 
  Country: None (occurrence: None)
  Receive Date: 20100528
  Receipt Date: 20091106
  Transmission Date: 20101027
  Serious: No
  Sender: FDA-Public Use
  Company Number: US-ASTRAZENECA-2009SE31551

PATIENT
  Sex: Female

DRUGS (3)
  1. PRILOSEC OTC [Suspect]
     Route: 048
  2. WARFARIN SODIUM [Concomitant]
     Dosage: UNKNOWN
  3. VITAMINS                           /90003601/ [Concomitant]
     Dosage: UNKNOWN

REACTIONS (2)
  - DIARRHOEA [None]
  - PRODUCT BLISTER PACKAGING ISSUE [None]
